FAERS Safety Report 10012289 (Version 1)
Quarter: 2014Q1

REPORT INFORMATION
  Report Type: Spontaneous
  Country: US (occurrence: US)
  Receive Date: 20140312
  Receipt Date: 20140312
  Transmission Date: 20141002
  Serious: No
  Sender: FDA-Public Use
  Company Number: US-PFIZER INC-2014068656

PATIENT
  Age: 64 Year
  Sex: Female
  Weight: 86.17 kg

DRUGS (4)
  1. BOSULIF [Suspect]
     Indication: CHRONIC MYELOID LEUKAEMIA
     Dosage: 500 MG, 1X/DAY
     Dates: start: 20140220
  2. CARVEDILOL [Concomitant]
     Dosage: UNK
  3. ALLOPURINOL [Concomitant]
     Dosage: UNK
  4. POTASSIUM [Concomitant]
     Dosage: UNK

REACTIONS (3)
  - Abdominal pain upper [Unknown]
  - Diarrhoea [Unknown]
  - Flatulence [Unknown]
